FAERS Safety Report 4589891-1 (Version None)
Quarter: 2005Q1

REPORT INFORMATION
  Report Type: 
  Country: None (occurrence: None)
  Receive Date: 20050223
  Receipt Date: 20050215
  Transmission Date: 20050727
  Serious: Yes (Other)
  Sender: FDA-Public Use
  Company Number: CA-MERCK-0502CAN00122

PATIENT
  Age: 40 Year
  Sex: Female

DRUGS (10)
  1. VIOXX [Suspect]
     Indication: PAIN
     Route: 048
     Dates: start: 20000405, end: 20000401
  2. VIOXX [Suspect]
     Route: 048
     Dates: start: 20000401, end: 20000601
  3. VIOXX [Suspect]
     Route: 048
     Dates: start: 20000601, end: 20000901
  4. VIOXX [Suspect]
     Route: 048
     Dates: start: 20000901, end: 20001101
  5. VIOXX [Suspect]
     Route: 048
     Dates: start: 20001101
  6. VIOXX [Suspect]
     Indication: INJURY
     Route: 048
     Dates: start: 20000405, end: 20000401
  7. VIOXX [Suspect]
     Route: 048
     Dates: start: 20000401, end: 20000601
  8. VIOXX [Suspect]
     Route: 048
     Dates: start: 20000601, end: 20000901
  9. VIOXX [Suspect]
     Route: 048
     Dates: start: 20000901, end: 20001101
  10. VIOXX [Suspect]
     Route: 048
     Dates: start: 20001101

REACTIONS (1)
  - HAEMORRHAGIC STROKE [None]
